FAERS Safety Report 23214414 (Version 1)
Quarter: 2023Q4

REPORT INFORMATION
  Report Type: Spontaneous
  Country: CA (occurrence: CA)
  Receive Date: 20231121
  Receipt Date: 20231121
  Transmission Date: 20240110
  Serious: Yes (Other)
  Sender: FDA-Public Use
  Company Number: CA-ASTELLAS-2023US022471

PATIENT
  Age: 73 Year
  Sex: Female

DRUGS (7)
  1. TACROLIMUS [Suspect]
     Active Substance: TACROLIMUS
     Indication: Drug eruption
     Dosage: UNK, UNKNOWN FREQ.
     Route: 065
  2. ACITRETIN [Suspect]
     Active Substance: ACITRETIN
     Indication: Drug eruption
     Dosage: UNK UNK, UNKNOWN FREQ.
     Route: 065
  3. BETAMETHASONE VALERATE [Suspect]
     Active Substance: BETAMETHASONE VALERATE
     Indication: Drug eruption
     Dosage: UNK UNK, UNKNOWN FREQ.
     Route: 065
  4. DUPILUMAB [Suspect]
     Active Substance: DUPILUMAB
     Indication: Dermatitis atopic
     Dosage: 600 MG, OTHER (1 EVERY)
     Route: 058
  5. DUPILUMAB [Suspect]
     Active Substance: DUPILUMAB
     Route: 058
  6. PREDNISONE [Suspect]
     Active Substance: PREDNISONE
     Indication: Drug eruption
     Dosage: UNK UNK, UNKNOWN FREQ.
     Route: 065
  7. ALITRETINOIN [Concomitant]
     Active Substance: ALITRETINOIN
     Indication: Drug eruption
     Dosage: UNK UNK, UNKNOWN FREQ.
     Route: 065

REACTIONS (3)
  - Drug eruption [Recovered/Resolved]
  - Drug ineffective for unapproved indication [Unknown]
  - Off label use [Unknown]
